FAERS Safety Report 4431929-6 (Version None)
Quarter: 2004Q3

REPORT INFORMATION
  Report Type: 
  Country: None (occurrence: None)
  Receive Date: 20040819
  Receipt Date: 20040810
  Transmission Date: 20050211
  Serious: Yes (Other)
  Sender: FDA-Public Use
  Company Number: 2004228011ZA

PATIENT

DRUGS (1)
  1. BEXTRA [Suspect]
     Indication: RENAL TUBULAR ACIDOSIS
     Dosage: ORAL
     Route: 048

REACTIONS (2)
  - HYPERCALCAEMIA [None]
  - TETANY [None]
